FAERS Safety Report 5164823-6 (Version None)
Quarter: 2006Q4

REPORT INFORMATION
  Report Type: 
  Country: None (occurrence: None)
  Receive Date: 20061205
  Receipt Date: 20061121
  Transmission Date: 20070319
  Serious: Yes (Death)
  Sender: FDA-Public Use
  Company Number: ES-BRISTOL-MYERS SQUIBB COMPANY-13590088

PATIENT
  Age: 70 Year
  Sex: Female

DRUGS (3)
  1. METFORMIN HCL [Suspect]
     Indication: DIABETES MELLITUS
     Route: 048
     Dates: end: 20060627
  2. ANTI-INFLAMMATORY NOS [Suspect]
     Dates: start: 20060625, end: 20060625
  3. EUGLUCON N [Concomitant]
     Indication: DIABETES MELLITUS
     Dates: end: 20060627

REACTIONS (2)
  - LACTIC ACIDOSIS [None]
  - RENAL FAILURE [None]
